FAERS Safety Report 4584138-4 (Version None)
Quarter: 2005Q1

REPORT INFORMATION
  Report Type: 
  Country: None (occurrence: None)
  Receive Date: 20050125
  Receipt Date: 20041011
  Transmission Date: 20050727
  Serious: No
  Sender: FDA-Public Use
  Company Number: USA041080818

PATIENT
  Age: 80 Year
  Sex: Female
  Weight: 61 kg

DRUGS (8)
  1. FORTEO [Suspect]
     Indication: OSTEOPOROSIS
     Dosage: 20 UG DAY
     Dates: start: 20040916, end: 20040917
  2. PREDNISONE [Concomitant]
  3. ACTONEL [Concomitant]
  4. NEXIUM [Concomitant]
  5. ASPIRIN [Concomitant]
  6. CALCIUM CARBONATE [Concomitant]
  7. VITAMIN E [Concomitant]
  8. ZITHROMAX [Concomitant]

REACTIONS (3)
  - MYALGIA [None]
  - PAIN [None]
  - SPINAL FRACTURE [None]
